FAERS Safety Report 7725392-7 (Version None)
Quarter: 2011Q3

REPORT INFORMATION
  Report Type: 
  Country: None (occurrence: None)
  Receive Date: 20110902
  Receipt Date: 20110830
  Transmission Date: 20111222
  Serious: No
  Sender: FDA-Public Use
  Company Number: US-PFIZER INC-2011179783

PATIENT
  Sex: Male
  Weight: 106.58 kg

DRUGS (3)
  1. PRILOSEC [Concomitant]
     Dosage: 20 MG, IN AM
     Dates: start: 20050101
  2. LAMICTAL [Concomitant]
     Dosage: 200 MG, IN AM
     Dates: start: 20100101
  3. PRISTIQ [Suspect]
     Indication: DEPRESSION
     Dosage: 50 MG, 1X/DAY
     Dates: start: 20101103, end: 20110130

REACTIONS (2)
  - AEROPHAGIA [None]
  - ERUCTATION [None]
